FAERS Safety Report 4402229-5 (Version None)
Quarter: 2004Q3

REPORT INFORMATION
  Report Type: 
  Country: None (occurrence: None)
  Receive Date: 20040719
  Receipt Date: 20040705
  Transmission Date: 20050211
  Serious: No
  Sender: FDA-Public Use
  Company Number: 2004GB01102

PATIENT
  Age: 63 Year
  Sex: Male
  Weight: 70 kg

DRUGS (2)
  1. CRESTOR [Suspect]
     Indication: CORONARY ARTERY DISEASE
     Dosage: 10 MG QD PO
     Route: 048
     Dates: start: 20040405, end: 20040409
  2. AMLODIPINE [Concomitant]

REACTIONS (2)
  - MUSCLE CRAMP [None]
  - MUSCLE TWITCHING [None]
